FAERS Safety Report 25999266 (Version 1)
Quarter: 2025Q4

REPORT INFORMATION
  Report Type: Report from Study
  Country: US (occurrence: US)
  Receive Date: 20251105
  Receipt Date: 20251105
  Transmission Date: 20260117
  Serious: Yes (Other)
  Sender: ALEXION PHARMACEUTICALS
  Company Number: A202309725

PATIENT
  Age: 59 Year
  Sex: Female

DRUGS (2)
  1. STRENSIQ [Suspect]
     Active Substance: ASFOTASE ALFA
     Indication: Phosphorus metabolism disorder
     Dosage: 2 MILLIGRAM/KILOGRAM, TIW
     Route: 065
  2. LATUDA [Concomitant]
     Active Substance: LURASIDONE HYDROCHLORIDE
     Dosage: UNK

REACTIONS (33)
  - Seizure [Unknown]
  - Neuropathy peripheral [Unknown]
  - Deafness [Unknown]
  - Heart rate irregular [Unknown]
  - Tinnitus [Unknown]
  - Gait disturbance [Unknown]
  - Spinal disorder [Unknown]
  - Pain in jaw [Unknown]
  - Arthralgia [Unknown]
  - Joint dislocation [Unknown]
  - Back pain [Unknown]
  - Migraine [Unknown]
  - Insomnia [Unknown]
  - Sleep apnoea syndrome [Unknown]
  - Malaise [Unknown]
  - Fatigue [Unknown]
  - Ear congestion [Unknown]
  - Ear pain [Unknown]
  - Coordination abnormal [Unknown]
  - Vision blurred [Unknown]
  - Dyspnoea [Unknown]
  - Arthritis [Unknown]
  - Arthralgia [Unknown]
  - Swelling [Unknown]
  - Muscular weakness [Unknown]
  - Myalgia [Unknown]
  - Neck pain [Unknown]
  - Musculoskeletal stiffness [Unknown]
  - Change of bowel habit [Unknown]
  - Balance disorder [Unknown]
  - Sensory loss [Unknown]
  - Asthenia [Unknown]
  - Scleral discolouration [Unknown]
